FAERS Safety Report 16268282 (Version 7)
Quarter: 2020Q4

REPORT INFORMATION
  Report Type: Spontaneous
  Country: JP (occurrence: JP)
  Receive Date: 20190503
  Receipt Date: 20201023
  Transmission Date: 20210113
  Serious: Yes (Hospitalization, Other)
  Sender: FDA-Public Use
  Company Number: JP-BRISTOL-MYERS SQUIBB COMPANY-BMS-2019-010227

PATIENT
  Age: 43 Year
  Sex: Female
  Weight: 52 kg

DRUGS (9)
  1. OPDIVO [Suspect]
     Active Substance: NIVOLUMAB
     Dosage: 180 MILLIGRAM
     Route: 041
     Dates: start: 20170719, end: 20170913
  2. OPDIVO [Suspect]
     Active Substance: NIVOLUMAB
     Dosage: 189 MILLIGRAM
     Route: 041
     Dates: start: 20170927, end: 20171206
  3. OPDIVO [Suspect]
     Active Substance: NIVOLUMAB
     Dosage: 198 MILLIGRAM
     Route: 041
     Dates: start: 20180411, end: 20180606
  4. OPDIVO [Suspect]
     Active Substance: NIVOLUMAB
     Dosage: 198 MILLIGRAM
     Route: 041
     Dates: start: 20171220, end: 20180110
  5. TORISEL [Concomitant]
     Active Substance: TEMSIROLIMUS
     Indication: METASTATIC RENAL CELL CARCINOMA
     Dosage: UNK
     Dates: start: 20190327, end: 20190710
  6. SUTENT [Concomitant]
     Active Substance: SUNITINIB MALATE
     Indication: METASTATIC RENAL CELL CARCINOMA
     Dosage: UNK
     Route: 065
     Dates: start: 20180702, end: 20180715
  7. OPDIVO [Suspect]
     Active Substance: NIVOLUMAB
     Dosage: 200 MILLIGRAM
     Route: 041
     Dates: start: 20180124, end: 20180221
  8. OPDIVO [Suspect]
     Active Substance: NIVOLUMAB
     Indication: METASTATIC RENAL CELL CARCINOMA
     Dosage: 176 MILLIGRAM
     Route: 041
     Dates: start: 20170601, end: 20170705
  9. NEXAVAR [Concomitant]
     Active Substance: SORAFENIB
     Indication: METASTATIC RENAL CELL CARCINOMA
     Dosage: UNK
     Route: 065
     Dates: start: 20181031, end: 20190326

REACTIONS (6)
  - Pyelonephritis [Recovered/Resolved]
  - Malignant neoplasm progression [Unknown]
  - Autoimmune nephritis [Unknown]
  - Urinary tract infection [Unknown]
  - Dermatitis acneiform [Recovered/Resolved]
  - Pyrexia [Recovered/Resolved]

NARRATIVE: CASE EVENT DATE: 20170705
